FAERS Safety Report 25080722 (Version 1)
Quarter: 2025Q1

REPORT INFORMATION
  Report Type: Report from Study
  Country: MX (occurrence: MX)
  Receive Date: 20250315
  Receipt Date: 20250315
  Transmission Date: 20250408
  Serious: Yes (Hospitalization, Other)
  Sender: JOHNSON AND JOHNSON
  Company Number: MX-JNJFOC-20250316339

PATIENT
  Age: 79 Year
  Sex: Female
  Weight: 65 kg

DRUGS (8)
  1. DARZALEX [Suspect]
     Active Substance: DARATUMUMAB
     Indication: Plasma cell myeloma
     Route: 041
     Dates: start: 20211124
  2. DARZALEX [Suspect]
     Active Substance: DARATUMUMAB
     Route: 041
     Dates: start: 20220118, end: 20220308
  3. DARZALEX [Suspect]
     Active Substance: DARATUMUMAB
     Dosage: BIWEEKLY
     Route: 041
     Dates: start: 20220322, end: 20220628
  4. DARZALEX [Suspect]
     Active Substance: DARATUMUMAB
     Dosage: BIWEEKLY
     Route: 041
     Dates: start: 20220719
  5. REVLIMID [Suspect]
     Active Substance: LENALIDOMIDE
     Indication: Plasma cell myeloma
     Route: 065
  6. REVLIMID [Suspect]
     Active Substance: LENALIDOMIDE
  7. DEXAMETHASONE [Suspect]
     Active Substance: DEXAMETHASONE
     Indication: Plasma cell myeloma
     Route: 065
  8. DENOSUMAB [Suspect]
     Active Substance: DENOSUMAB
     Indication: Plasma cell myeloma
     Route: 058

REACTIONS (11)
  - Sepsis [Unknown]
  - Neutropenia [Unknown]
  - Thrombocytopenia [Unknown]
  - Brain neoplasm benign [Unknown]
  - Leukopenia [Unknown]
  - Fall [Unknown]
  - Humerus fracture [Unknown]
  - Immunoglobulins decreased [Unknown]
  - Light chain analysis increased [Unknown]
  - Anaemia [Unknown]
  - Intentional product use issue [Unknown]
